FAERS Safety Report 10096692 (Version 1)
Quarter: 2014Q2

REPORT INFORMATION
  Report Type: Spontaneous
  Country: US (occurrence: US)
  Receive Date: 20140422
  Receipt Date: 20140422
  Transmission Date: 20141212
  Serious: No
  Sender: FDA-Public Use
  Company Number: US-B.I. PHARMACEUTICALS,INC./RIDGEFIELD-2014-BI-16944BP

PATIENT
  Sex: Male
  Weight: 65 kg

DRUGS (4)
  1. PRADAXA [Suspect]
     Indication: ATRIAL FIBRILLATION
     Dosage: 300 MG
     Route: 048
     Dates: start: 2010
  2. ALLEGRA [Concomitant]
     Indication: HYPERSENSITIVITY
     Dosage: DOSE PER APPLICATION:1 CAPSULE;
     Route: 048
  3. NEXIUM [Concomitant]
     Indication: DYSPEPSIA
     Dosage: DOSE PER APPLICATION: 1 CAPSULE
     Route: 048
  4. AMLODIPINE [Concomitant]
     Indication: CARDIAC DISORDER
     Dosage: 5 MG
     Route: 048

REACTIONS (3)
  - Wound haemorrhage [Recovered/Resolved]
  - Skin fragility [Not Recovered/Not Resolved]
  - Memory impairment [Not Recovered/Not Resolved]
